FAERS Safety Report 24081696 (Version 1)
Quarter: 2024Q3

REPORT INFORMATION
  Report Type: Spontaneous
  Country: CN (occurrence: CN)
  Receive Date: 20240712
  Receipt Date: 20240712
  Transmission Date: 20241017
  Serious: Yes (Other)
  Sender: NOVO NORDISK
  Company Number: None

PATIENT
  Age: 35 Year
  Sex: Male
  Weight: 72 kg

DRUGS (1)
  1. OZEMPIC [Suspect]
     Active Substance: SEMAGLUTIDE
     Indication: Type 2 diabetes mellitus
     Dosage: 0.25 MG, QW
     Route: 058
     Dates: start: 20240524, end: 20240604

REACTIONS (5)
  - Chest discomfort [Recovering/Resolving]
  - Dyspnoea [Recovering/Resolving]
  - Vomiting [Recovering/Resolving]
  - Palpitations [Recovering/Resolving]
  - Dizziness [Recovering/Resolving]

NARRATIVE: CASE EVENT DATE: 20240604
